FAERS Safety Report 9308411 (Version 1)
Quarter: 2013Q2

REPORT INFORMATION
  Report Type: Report from Study
  Country: US (occurrence: US)
  Receive Date: 20130524
  Receipt Date: 20130524
  Transmission Date: 20140414
  Serious: Yes (Other)
  Sender: FDA-Public Use
  Company Number: US-ROCHE-1069991

PATIENT
  Age: 62 Year
  Sex: Male
  Weight: 99.88 kg

DRUGS (2)
  1. VISMODEGIB [Suspect]
     Indication: BASAL CELL CARCINOMA
     Route: 048
     Dates: start: 201201
  2. VISMODEGIB [Suspect]
     Route: 048
     Dates: start: 201211

REACTIONS (3)
  - Muscle spasms [Not Recovered/Not Resolved]
  - Upper limb fracture [Unknown]
  - Fracture delayed union [Unknown]
